FAERS Safety Report 11994736 (Version 1)
Quarter: 2016Q1

REPORT INFORMATION
  Report Type: Report from Study
  Country: US (occurrence: US)
  Receive Date: 20160203
  Receipt Date: 20160203
  Transmission Date: 20160526
  Serious: No
  Sender: FDA-Public Use
  Company Number: US-UCBSA-2015027603

PATIENT
  Sex: Female

DRUGS (5)
  1. LEVETIRACETAM. [Suspect]
     Active Substance: LEVETIRACETAM
     Indication: PRODUCT USED FOR UNKNOWN INDICATION
     Dosage: UNK
  2. TOPAMAX [Concomitant]
     Active Substance: TOPIRAMATE
     Indication: SEIZURE
  3. FYCOMPA [Concomitant]
     Active Substance: PERAMPANEL
     Indication: PRODUCT USED FOR UNKNOWN INDICATION
     Dosage: 4 MG, UNK
  4. FYCOMPA [Concomitant]
     Active Substance: PERAMPANEL
     Dosage: UNK
  5. FYCOMPA [Concomitant]
     Active Substance: PERAMPANEL
     Dosage: 6 MG, UNK

REACTIONS (5)
  - Anger [Unknown]
  - Abnormal behaviour [Unknown]
  - Aggression [Unknown]
  - Affective disorder [Unknown]
  - Adverse drug reaction [Unknown]
